FAERS Safety Report 9776165 (Version 1)
Quarter: 2013Q4

REPORT INFORMATION
  Report Type: Spontaneous
  Country: US (occurrence: None)
  Receive Date: 20131218
  Receipt Date: 20131218
  Transmission Date: 20140711
  Serious: Yes (Hospitalization)
  Sender: FDA-Public Use
  Company Number: DAV-AE-DIA-13-10

PATIENT
  Age: 38 Year
  Sex: Female

DRUGS (1)
  1. DIAZEPAM [Suspect]
     Indication: OVERDOSE
     Dosage: 150 MG, UNKNOWN, UNKNOWN

REACTIONS (6)
  - Hypotension [None]
  - Bradycardia [None]
  - Anuria [None]
  - Overdose [None]
  - Toxicity to various agents [None]
  - Arrhythmia [None]
